FAERS Safety Report 20115383 (Version 1)
Quarter: 2021Q4

REPORT INFORMATION
  Report Type: Spontaneous
  Country: US (occurrence: US)
  Receive Date: 20211125
  Receipt Date: 20211125
  Transmission Date: 20220304
  Serious: Yes (Life-Threatening, Hospitalization)
  Sender: FDA-Public Use
  Company Number: US-JNJFOC-20211133669

PATIENT
  Age: 34 Year
  Sex: Female
  Weight: 64 kg

DRUGS (3)
  1. TYLENOL EXTRA STRENGTH [Suspect]
     Active Substance: ACETAMINOPHEN
     Indication: Product used for unknown indication
     Dosage: ACETAMINOPHEN 500 MG AT A DOSE OF ACETAMINOPHEN 4000 MG/ DAY OF ACETAMINOPHEN FOR 5 DAYS
     Route: 048
     Dates: start: 200006, end: 20000627
  2. EXCEDRIN PM [Suspect]
     Active Substance: ACETAMINOPHEN\DIPHENHYDRAMINE\DIPHENHYDRAMINE CITRATE
     Indication: Product used for unknown indication
     Dosage: ACETAMINOPHEN 500 MG/ DIPHENHYDRAMINE 38 MG AT AN UNKNOWN DOSE FOR 5 DAYS
     Route: 048
     Dates: start: 200006, end: 20000627
  3. PERCOCET [Suspect]
     Active Substance: ACETAMINOPHEN\OXYCODONE HYDROCHLORIDE
     Indication: Product used for unknown indication
     Dosage: ACETAMINOPHEN/ OXYCODONE HYDROCHLORIDE AT AN UNKNOWN DOSE FOR 2 DAYS
     Route: 048
     Dates: end: 20000627

REACTIONS (8)
  - Acute hepatic failure [Recovered/Resolved]
  - Acute kidney injury [Not Recovered/Not Resolved]
  - Hypotension [Recovered/Resolved]
  - Metabolic acidosis [Recovered/Resolved]
  - Hypoglycaemia [Recovered/Resolved]
  - Chest X-ray abnormal [Recovered/Resolved]
  - Product administration error [Recovered/Resolved]
  - Accidental overdose [Recovered/Resolved]

NARRATIVE: CASE EVENT DATE: 20000628
